FAERS Safety Report 8764505 (Version 9)
Quarter: 2013Q2

REPORT INFORMATION
  Report Type: Report from Study
  Country: IL (occurrence: IL)
  Receive Date: 20120831
  Receipt Date: 20130509
  Transmission Date: 20140414
  Serious: Yes (Hospitalization)
  Sender: FDA-Public Use
  Company Number: IL-009507513-1205USA05328

PATIENT
  Age: 14 Month
  Sex: Female
  Weight: 8.5 kg

DRUGS (16)
  1. APREPITANT [Suspect]
     Indication: PROPHYLAXIS OF NAUSEA AND VOMITING
     Dosage: 1 ML, ONCE
     Route: 048
     Dates: start: 20120520, end: 20120520
  2. APREPITANT [Suspect]
     Dosage: 0.68 ML, QD
     Route: 048
     Dates: start: 20120521, end: 20120522
  3. ONDANSETRON [Suspect]
     Indication: PROPHYLAXIS OF NAUSEA AND VOMITING
     Dosage: 2 MG, QPM
     Route: 042
     Dates: start: 20120520, end: 20120522
  4. ONDANSETRON [Suspect]
     Dosage: 2 MG, QAM
     Route: 042
     Dates: start: 20120521, end: 20120523
  5. ONDANSETRON [Suspect]
     Dosage: 1.5 MG, QPM
     Route: 042
     Dates: start: 20120525, end: 20120525
  6. ONDANSETRON [Suspect]
     Dosage: 3 MG, QAM
     Route: 042
     Dates: start: 20120526, end: 20120526
  7. ONDANSETRON [Suspect]
     Dosage: 1.5 MG, QPM
     Route: 042
     Dates: start: 20120525, end: 20120526
  8. ONDANSETRON [Suspect]
     Dosage: 2 MG, QPM
     Route: 042
     Dates: start: 20120526, end: 20120526
  9. ETOPOSIDE [Suspect]
     Indication: YOLK SAC TUMOUR SITE UNSPECIFIED
     Dosage: 34 MG, QD
     Route: 042
     Dates: start: 20120520, end: 20120522
  10. CARBOPLATIN [Suspect]
     Indication: YOLK SAC TUMOUR SITE UNSPECIFIED
     Dosage: 170 MG, QD
     Route: 042
     Dates: start: 20120520, end: 20120520
  11. BLEOMYCIN [Suspect]
     Indication: YOLK SAC TUMOUR SITE UNSPECIFIED
     Dosage: 4.25 MG, QD
     Route: 042
     Dates: start: 20120521, end: 20120521
  12. RESPRIM [Concomitant]
     Indication: ANTIFUNGAL PROPHYLAXIS
     Dosage: DOSE: 40 CC
     Route: 048
     Dates: start: 20120218
  13. BENADRYL [Concomitant]
     Indication: PREMEDICATION
     Dosage: 5 MG, QD
     Route: 042
     Dates: start: 20120521, end: 20120521
  14. HYDROCORTISONE [Concomitant]
     Indication: PREMEDICATION
     Dosage: 5 MG, QD
     Route: 042
     Dates: start: 20120521, end: 20120521
  15. ACAMOL [Concomitant]
     Indication: PREMEDICATION
     Dosage: 100 MG, QD
     Route: 048
     Dates: start: 20120521, end: 20120521
  16. BLOOD CELLS, RED [Concomitant]
     Indication: HAEMOGLOBIN DECREASED
     Dosage: UNK, ONCE
     Route: 042
     Dates: start: 20120514, end: 20120514

REACTIONS (1)
  - Clostridium difficile infection [Recovered/Resolved]
